FAERS Safety Report 7781239-4 (Version None)
Quarter: 2011Q3

REPORT INFORMATION
  Report Type: 
  Country: None (occurrence: None)
  Receive Date: 20110927
  Receipt Date: 20110923
  Transmission Date: 20111222
  Serious: Yes (Hospitalization, Other)
  Sender: FDA-Public Use
  Company Number: US-TEVA-302446USA

PATIENT
  Sex: Female

DRUGS (2)
  1. ALENDRONIC ACID [Suspect]
  2. ALENDRONATE SODIUM [Suspect]

REACTIONS (4)
  - PULMONARY EMBOLISM [None]
  - MULTIPLE INJURIES [None]
  - ECONOMIC PROBLEM [None]
  - FEMUR FRACTURE [None]
